FAERS Safety Report 26185286 (Version 1)
Quarter: 2025Q4

REPORT INFORMATION
  Report Type: Spontaneous
  Country: EU (occurrence: EU)
  Receive Date: 20251222
  Receipt Date: 20251222
  Transmission Date: 20260117
  Serious: Yes (Other)
  Sender: Onesource Specialty Pharma
  Company Number: EU-STRIDES ARCOLAB LIMITED-2025OS001513

PATIENT
  Age: 4 Decade
  Sex: Female

DRUGS (18)
  1. ETOPOSIDE [Suspect]
     Active Substance: ETOPOSIDE
     Indication: Neuroendocrine carcinoma
     Dosage: UNK, CYCLICAL, RECEIVED 3 CYCLES
     Route: 065
     Dates: start: 202202
  2. ETOPOSIDE [Suspect]
     Active Substance: ETOPOSIDE
     Indication: Mediastinum neoplasm
  3. CISPLATIN [Suspect]
     Active Substance: CISPLATIN
     Indication: Neuroendocrine carcinoma
     Dosage: UNK, CYCLE,RECEIVED 3 CYCLES
     Route: 065
     Dates: start: 202202
  4. CISPLATIN [Suspect]
     Active Substance: CISPLATIN
     Indication: Mediastinum neoplasm
  5. DOXORUBICIN [Concomitant]
     Active Substance: DOXORUBICIN
     Indication: Neoadjuvant therapy
     Dosage: UNK, CYCLE, RECEIVED 4 CYCLES
     Route: 065
  6. DOXORUBICIN [Concomitant]
     Active Substance: DOXORUBICIN
     Indication: Hormone receptor positive HER2 negative breast cancer
  7. DOXORUBICIN [Concomitant]
     Active Substance: DOXORUBICIN
     Indication: Breast cancer female
  8. CYCLOPHOSPHAMIDE [Concomitant]
     Active Substance: CYCLOPHOSPHAMIDE
     Indication: Neoadjuvant therapy
     Dosage: UNK, CYCLE, RECEIVED 4CYCLES
     Route: 065
  9. CYCLOPHOSPHAMIDE [Concomitant]
     Active Substance: CYCLOPHOSPHAMIDE
     Indication: Hormone receptor positive HER2 negative breast cancer
  10. CYCLOPHOSPHAMIDE [Concomitant]
     Active Substance: CYCLOPHOSPHAMIDE
     Indication: Breast cancer female
  11. PACLITAXEL [Concomitant]
     Active Substance: PACLITAXEL
     Indication: Hormone receptor positive HER2 negative breast cancer
     Dosage: UNK, CYCLE, RECEIVED 12 CYCLES
     Route: 065
  12. PACLITAXEL [Concomitant]
     Active Substance: PACLITAXEL
     Indication: Breast cancer female
  13. EXEMESTANE [Concomitant]
     Active Substance: EXEMESTANE
     Indication: Hormone receptor positive HER2 negative breast cancer
     Dosage: UNK
     Route: 065
  14. EXEMESTANE [Concomitant]
     Active Substance: EXEMESTANE
     Indication: Breast cancer
  15. EXEMESTANE [Concomitant]
     Active Substance: EXEMESTANE
     Indication: Metastases to lymph nodes
  16. TAMOXIFEN [Concomitant]
     Active Substance: TAMOXIFEN
     Indication: Hormone receptor positive HER2 negative breast cancer
     Dosage: UNK
     Route: 065
  17. TAMOXIFEN [Concomitant]
     Active Substance: TAMOXIFEN
     Indication: Breast cancer female
  18. TAMOXIFEN [Concomitant]
     Active Substance: TAMOXIFEN
     Indication: Metastases to lymph nodes

REACTIONS (2)
  - Neoplasm progression [Unknown]
  - Off label use [Unknown]
